FAERS Safety Report 6959407-0 (Version None)
Quarter: 2010Q3

REPORT INFORMATION
  Report Type: 
  Country: None (occurrence: None)
  Receive Date: 20100831
  Receipt Date: 20100831
  Transmission Date: 20110219
  Serious: No
  Sender: FDA-Public Use
  Company Number: None

PATIENT
  Age: 25 Year
  Sex: Female

DRUGS (1)
  1. AVONEX [Suspect]
     Indication: MULTIPLE SCLEROSIS
     Dosage: 30 MCG WEEKLY IM
     Route: 030
     Dates: start: 20100801

REACTIONS (3)
  - BACK PAIN [None]
  - CHEST PAIN [None]
  - HEADACHE [None]
